FAERS Safety Report 17435940 (Version 1)
Quarter: 2020Q1

REPORT INFORMATION
  Report Type: Spontaneous
  Country: LT (occurrence: LT)
  Receive Date: 20200219
  Receipt Date: 20200219
  Transmission Date: 20200409
  Serious: Yes (Life-Threatening, Hospitalization)
  Sender: FDA-Public Use
  Company Number: LT-PFIZER INC-2020072759

PATIENT
  Age: 57 Year
  Sex: Male
  Weight: 104 kg

DRUGS (19)
  1. TIAPRIDE [Suspect]
     Active Substance: TIAPRIDE
     Indication: PSYCHOMOTOR HYPERACTIVITY
     Dosage: 300 MG, UNK
     Route: 048
     Dates: start: 20191219, end: 20191219
  2. AMLODIPINE BESILATE [Suspect]
     Active Substance: AMLODIPINE BESYLATE
     Indication: HYPERTENSION
     Dosage: 5 MG, UNK
     Route: 048
     Dates: start: 20191218, end: 20191218
  3. DIAZEPAM. [Suspect]
     Active Substance: DIAZEPAM
     Indication: MENTAL DISORDER
  4. CHLORPROTHIXENE [Suspect]
     Active Substance: CHLORPROTHIXENE
     Indication: ALCOHOL ABUSE
     Dosage: 50 MG, UNK
     Route: 048
     Dates: start: 20191217, end: 20191217
  5. SILIMARIN [Suspect]
     Active Substance: HERBALS\SILYBUM MARIANUM WHOLE
     Indication: HEPATITIS ALCOHOLIC
     Dosage: 67.5 MG, UNK
     Route: 048
     Dates: start: 20191218, end: 20191219
  6. DIAZEPAM. [Suspect]
     Active Substance: DIAZEPAM
     Indication: ALCOHOL ABUSE
     Dosage: 6 ML, UNK
     Route: 030
     Dates: start: 20191217, end: 20191219
  7. CHLORPROTHIXENE [Suspect]
     Active Substance: CHLORPROTHIXENE
     Indication: MENTAL DISORDER
  8. TRIHEXYPHENIDYL [Suspect]
     Active Substance: TRIHEXYPHENIDYL
     Dosage: 4 MG, UNK
     Route: 048
     Dates: start: 20191219, end: 20191219
  9. HALOPERIDOL INJECTION [Suspect]
     Active Substance: HALOPERIDOL
     Indication: DELIRIUM
     Dosage: 5 MG, UNK
     Route: 030
     Dates: start: 20191217, end: 20191218
  10. ENALAPRIL [Suspect]
     Active Substance: ENALAPRIL
     Indication: HYPERTENSION
     Dosage: 20 MG, UNK
     Route: 048
     Dates: start: 20191218, end: 20191219
  11. RINGER ACETATE [Suspect]
     Active Substance: CALCIUM CHLORIDE\POTASSIUM CHLORIDE\SODIUM ACETATE
     Indication: DETOXIFICATION
     Dosage: 500 ML, UNK
     Route: 040
     Dates: start: 20191218, end: 20191218
  12. SODIUM CHLORIDE B.BRAUN [Suspect]
     Active Substance: SODIUM CHLORIDE
     Indication: DETOXIFICATION
     Dosage: 500 ML, UNK
     Route: 040
     Dates: start: 20191218, end: 20191218
  13. HALOPERIDOL INJECTION [Suspect]
     Active Substance: HALOPERIDOL
     Indication: ALCOHOL ABUSE
  14. METOPROLOL. [Suspect]
     Active Substance: METOPROLOL
     Indication: HYPERTENSION
     Dosage: 50 MG, UNK
     Route: 048
     Dates: start: 20191218, end: 20191219
  15. DIAZEPAM. [Suspect]
     Active Substance: DIAZEPAM
     Indication: DELIRIUM
  16. CHLORPROTHIXENE [Suspect]
     Active Substance: CHLORPROTHIXENE
     Indication: DELIRIUM
  17. HALOPERIDOL INJECTION [Suspect]
     Active Substance: HALOPERIDOL
     Indication: MENTAL DISORDER
  18. MAGNESIUM SULFATE. [Suspect]
     Active Substance: MAGNESIUM SULFATE
     Indication: DETOXIFICATION
     Dosage: 500 ML, UNK
     Route: 040
     Dates: start: 20191218, end: 20191218
  19. THROMBO ASS [Suspect]
     Active Substance: ASPIRIN
     Indication: HYPERTENSION
     Dosage: 100 MG, UNK
     Route: 048
     Dates: start: 20191217, end: 20191218

REACTIONS (2)
  - Respiratory disorder [Recovered/Resolved]
  - Neck pain [Recovered/Resolved]

NARRATIVE: CASE EVENT DATE: 20191219
